FAERS Safety Report 5199823-3 (Version None)
Quarter: 2007Q1

REPORT INFORMATION
  Report Type: 
  Country: None (occurrence: None)
  Receive Date: 20070105
  Receipt Date: 20061212
  Transmission Date: 20070707
  Serious: Yes (Other)
  Sender: FDA-Public Use
  Company Number: 2006UW28051

PATIENT
  Sex: Female

DRUGS (1)
  1. XYLOCAINE [Suspect]
     Route: 042

REACTIONS (1)
  - HAEMORRHAGE [None]
